FAERS Safety Report 20333231 (Version 2)
Quarter: 2022Q1

REPORT INFORMATION
  Report Type: Report from Study
  Country: CA (occurrence: CA)
  Receive Date: 20220113
  Receipt Date: 20220118
  Transmission Date: 20220423
  Serious: Yes (Hospitalization, Other)
  Sender: FDA-Public Use
  Company Number: CA-NOVARTISPH-NVSC2022CA004626

PATIENT
  Age: 74 Year
  Sex: Female

DRUGS (1)
  1. KYMRIAH [Suspect]
     Active Substance: TISAGENLECLEUCEL
     Indication: Diffuse large B-cell lymphoma
     Dosage: UNK, ONCE/SINGLE
     Route: 042
     Dates: start: 20211214

REACTIONS (9)
  - Gastrointestinal perforation [Unknown]
  - Intestinal perforation [Unknown]
  - Pleural effusion [Unknown]
  - Bacteraemia [Unknown]
  - Pyrexia [Unknown]
  - Pulmonary oedema [Unknown]
  - Pneumonia bacterial [Recovered/Resolved]
  - Abscess [Unknown]
  - Ill-defined disorder [Unknown]
